FAERS Safety Report 4278283-0 (Version None)
Quarter: 2004Q1

REPORT INFORMATION
  Report Type: 
  Country: None (occurrence: None)
  Receive Date: 20040121
  Receipt Date: 20040107
  Transmission Date: 20041129
  Serious: Yes (Disabling)
  Sender: FDA-Public Use
  Company Number: US_040199820

PATIENT
  Sex: Female

DRUGS (1)
  1. HEPARIN SODIUM [Suspect]
     Indication: MITRAL VALVE REPLACEMENT
     Dates: start: 20020327

REACTIONS (10)
  - ARRHYTHMIA [None]
  - ASTHENIA [None]
  - BACK PAIN [None]
  - CONFUSIONAL STATE [None]
  - GANGRENE [None]
  - HEPARIN-INDUCED THROMBOCYTOPENIA [None]
  - LEG AMPUTATION [None]
  - MONOPLEGIA [None]
  - OEDEMA PERIPHERAL [None]
  - TACHYCARDIA [None]
